FAERS Safety Report 5669807-7 (Version None)
Quarter: 2008Q1

REPORT INFORMATION
  Report Type: 
  Country: None (occurrence: None)
  Receive Date: 20080317
  Receipt Date: 20080305
  Transmission Date: 20080703
  Serious: Yes (Other)
  Sender: FDA-Public Use
  Company Number: ES-PFIZER INC-2008006307

PATIENT
  Age: 48 Year
  Sex: Male

DRUGS (1)
  1. XALATAN [Suspect]
     Indication: OCULAR HYPERTENSION
     Route: 047
     Dates: start: 20070101, end: 20070401

REACTIONS (2)
  - CHOKING SENSATION [None]
  - SENSE OF OPPRESSION [None]
